FAERS Safety Report 9508483 (Version 1)
Quarter: 2013Q1

REPORT INFORMATION
  Report Type: Spontaneous
  Country: US (occurrence: None)
  Receive Date: 20130305
  Receipt Date: 20130305
  Transmission Date: 20140127
  Serious: Yes (Other)
  Sender: FDA-Public Use
  Company Number: 163-21880-12083339

PATIENT
  Age: 50 Year
  Sex: Female

DRUGS (10)
  1. REVLIMID (LENALIDOMIDE) (25 MILLIGRAM, CAPSULES) [Suspect]
     Indication: PLASMA CELL MYELOMA
     Dosage: CAPSULE, 25 MG, 21 IN 28 D, PO
     Dates: start: 201208, end: 201209
  2. PREDNISONE [Concomitant]
  3. LISINOPRIL [Concomitant]
  4. SIMVASTATIN [Concomitant]
  5. HYDROXYCHLOROQUINE [Concomitant]
  6. DULOXETINE [Concomitant]
  7. NIFEDIPINE [Concomitant]
  8. PLAQUENIL (HYDROXYCHLOROQUINE PHOSPHATE) [Concomitant]
  9. CYMBALTA (DULOXETINE HYDROCHLORIDE) [Concomitant]
  10. NITROFURANTIN (NITROFURANTOIN) [Concomitant]

REACTIONS (12)
  - Nervousness [None]
  - Dyspareunia [None]
  - Disturbance in attention [None]
  - Mood swings [None]
  - Fatigue [None]
  - Non-cardiac chest pain [None]
  - Nausea [None]
  - Muscle spasms [None]
  - Back pain [None]
  - Bone pain [None]
  - Abdominal pain [None]
  - Oropharyngeal pain [None]
